FAERS Safety Report 9269968 (Version 1)
Quarter: 2013Q2

REPORT INFORMATION
  Report Type: Spontaneous
  Country: US (occurrence: None)
  Receive Date: 20130503
  Receipt Date: 20130503
  Transmission Date: 20140414
  Serious: Yes (Death)
  Sender: FDA-Public Use
  Company Number: None

PATIENT
  Age: 61 Year
  Sex: Male
  Weight: 95.26 kg

DRUGS (1)
  1. AZITHROMYCIN [Suspect]
     Dosage: FIRST DAY 2 TABLETS, 4 EACH DAY, 1 TABLET
     Route: 048
     Dates: start: 20130311, end: 20130317

REACTIONS (1)
  - Death [None]
